FAERS Safety Report 5545641-3 (Version None)
Quarter: 2007Q4

REPORT INFORMATION
  Report Type: 
  Country: None (occurrence: None)
  Receive Date: 20071206
  Receipt Date: 20071129
  Transmission Date: 20080405
  Serious: Yes (Hospitalization)
  Sender: FDA-Public Use
  Company Number: 2007-05450

PATIENT
  Age: 43 Year
  Sex: Male

DRUGS (5)
  1. FLUOROURACIL [Suspect]
     Indication: RECTAL CANCER
     Dosage: 350 MG/M2 X 24H DAYS 1-5/8 - 12, INTRAVENOUS
     Route: 042
     Dates: start: 20060101
  2. LEUCOVORIN CALCIUM [Concomitant]
  3. MITOMYCIN [Concomitant]
  4. RADIATION [Concomitant]
  5. OXALIPLATIN [Concomitant]

REACTIONS (1)
  - COLITIS [None]
